FAERS Safety Report 20152811 (Version 1)
Quarter: 2021Q4

REPORT INFORMATION
  Report Type: Report from Study
  Country: PL (occurrence: PL)
  Receive Date: 20211206
  Receipt Date: 20211206
  Transmission Date: 20220303
  Serious: Yes (Other)
  Sender: FDA-Public Use
  Company Number: PL-Merck Healthcare KGaA-9278081

PATIENT
  Age: 70 Year
  Sex: Female

DRUGS (30)
  1. IRINOTECAN HYDROCHLORIDE [Suspect]
     Active Substance: IRINOTECAN HYDROCHLORIDE
     Indication: Colorectal cancer metastatic
     Dosage: 180 MG/M2
     Dates: start: 20190326
  2. IRINOTECAN HYDROCHLORIDE [Suspect]
     Active Substance: IRINOTECAN HYDROCHLORIDE
     Dosage: 180 MG/M2
     Dates: start: 20210906
  3. CETUXIMAB [Suspect]
     Active Substance: CETUXIMAB
     Indication: Colorectal cancer metastatic
     Dosage: 500 MG/M2
     Dates: start: 20190326
  4. CETUXIMAB [Suspect]
     Active Substance: CETUXIMAB
     Dosage: 400 MG/M2
     Dates: start: 20190906
  5. FLUOROURACIL [Suspect]
     Active Substance: FLUOROURACIL
     Indication: Colorectal cancer metastatic
     Dosage: 1000 MG/M2
     Dates: start: 20190326
  6. FLUOROURACIL [Suspect]
     Active Substance: FLUOROURACIL
     Dosage: 600 MG/M2
     Dates: start: 20190907
  7. LEUCOVORIN [Suspect]
     Active Substance: LEUCOVORIN
     Indication: Colorectal cancer metastatic
     Dosage: 200 MG/M2
     Dates: start: 20190326
  8. LEUCOVORIN [Suspect]
     Active Substance: LEUCOVORIN
     Dosage: 200 MG/M2
     Dates: start: 20190907
  9. FILGRASTIM [Concomitant]
     Active Substance: FILGRASTIM
     Indication: Product used for unknown indication
     Dates: start: 20190530, end: 20190827
  10. FAMOTIDINE [Concomitant]
     Active Substance: FAMOTIDINE
     Indication: Product used for unknown indication
     Dates: start: 20190326, end: 20190819
  11. MAGNESIUM SULFURIC [Concomitant]
     Indication: Product used for unknown indication
     Dates: start: 20190821, end: 20190822
  12. THIETHYLPERAZINUM [Concomitant]
     Indication: Product used for unknown indication
     Dates: start: 20190326, end: 20190907
  13. CLEMASTINUM [CLEMASTINE] [Concomitant]
     Indication: Product used for unknown indication
     Dates: start: 20190326
  14. DOXYCYCLINUM [DOXYCYCLINE] [Concomitant]
     Indication: Product used for unknown indication
     Dates: start: 20190904
  15. SULFACETAMIDUM [SULFACETAMIDE] [Concomitant]
     Indication: Product used for unknown indication
     Dates: start: 20190909
  16. ATROPINUM SULFATE NYCOMED [Concomitant]
     Indication: Product used for unknown indication
     Dates: start: 20190326, end: 20190819
  17. ONDANSETRON [Concomitant]
     Active Substance: ONDANSETRON
     Indication: Product used for unknown indication
     Dates: start: 20190326, end: 20190907
  18. CALCIUM PANTOTHENICUM [Concomitant]
     Indication: Product used for unknown indication
     Dates: start: 20190910, end: 20190910
  19. LOPERAMIDI HYDROCHLORIDUM [Concomitant]
     Indication: Product used for unknown indication
     Dates: start: 20190326
  20. HYDROCORTISONUM [HYDROCORTISONE] [Concomitant]
     Indication: Product used for unknown indication
     Dates: start: 20190326, end: 20190906
  21. BRAUNOVIDON [Concomitant]
     Indication: Product used for unknown indication
     Dates: start: 20190513, end: 20190907
  22. TRAMADOLI HYDROCHLORIDUM [Concomitant]
     Indication: Product used for unknown indication
     Dates: start: 20190527, end: 20190819
  23. METHYLPREDNISOLONI ACEPONAS [Concomitant]
     Indication: Product used for unknown indication
     Dates: start: 20190413, end: 20190907
  24. MEGESTROLI ACETAS [Concomitant]
     Indication: Product used for unknown indication
     Dates: start: 20190511, end: 20190907
  25. ACETAMINOPHEN [Concomitant]
     Active Substance: ACETAMINOPHEN
     Indication: Product used for unknown indication
     Dates: start: 20190527, end: 20190905
  26. ELECTROLYTES NOS [Concomitant]
     Active Substance: ELECTROLYTES NOS
     Indication: Product used for unknown indication
     Dates: start: 20190628, end: 20190803
  27. DIAZEPAM [Concomitant]
     Active Substance: DIAZEPAM
     Indication: Product used for unknown indication
     Dates: start: 20190908
  28. TRIDERM [TRIAMCINOLONE ACETONIDE] [Concomitant]
     Indication: Product used for unknown indication
     Dates: start: 20190513, end: 20190907
  29. OMEPRAZOLUM [Concomitant]
     Indication: Product used for unknown indication
     Dates: start: 20190327, end: 20190807
  30. CALCIUM CHLORIDE\MAGNESIUM CHLORIDE\POTASSIUM CHLORIDE\SODIUM ACETATE\ [Concomitant]
     Active Substance: CALCIUM CHLORIDE\MAGNESIUM CHLORIDE\POTASSIUM CHLORIDE\SODIUM ACETATE\SODIUM CHLORIDE\SODIUM CITRATE
     Indication: Product used for unknown indication
     Dates: start: 20190426, end: 20190627

REACTIONS (1)
  - Delirium [Recovered/Resolved]

NARRATIVE: CASE EVENT DATE: 20190908
